FAERS Safety Report 9291145 (Version 2)
Quarter: 2013Q4

REPORT INFORMATION
  Report Type: Spontaneous
  Country: US (occurrence: US)
  Receive Date: 20130515
  Receipt Date: 20131105
  Transmission Date: 20140711
  Serious: Yes (Hospitalization)
  Sender: FDA-Public Use
  Company Number: US-B.I. PHARMACEUTICALS,INC./RIDGEFIELD-2013-BI-13307BP

PATIENT
  Age: 65 Year
  Sex: Female
  Weight: 68.04 kg

DRUGS (20)
  1. PRADAXA [Suspect]
     Indication: ANTICOAGULANT THERAPY
     Dosage: 300 MG
     Route: 048
     Dates: start: 20120508, end: 20120530
  2. PRADAXA [Suspect]
     Indication: ATRIAL FIBRILLATION
  3. ACTONEL [Concomitant]
     Route: 048
  4. AVANDAMET [Concomitant]
  5. ASPIRIN [Concomitant]
  6. CLONIDINE [Concomitant]
     Dosage: 0.6 MG
     Route: 048
  7. COMBIVENT [Concomitant]
  8. CYMBALTA [Concomitant]
     Dosage: 30 MG
  9. VALIUM [Concomitant]
     Dosage: 5 MG
  10. DILTIAZEM [Concomitant]
     Dosage: 180 MG
  11. DRISDOL [Concomitant]
  12. HCTZ [Concomitant]
     Dosage: 25 MG
  13. LORTAB [Concomitant]
  14. LYRICA [Concomitant]
     Dosage: 600 MG
  15. NEXIUM [Concomitant]
     Dosage: 40 MG
  16. OXYGEN [Concomitant]
  17. PHENERGAN [Concomitant]
  18. SIMVASTATIN [Concomitant]
     Dosage: 40 MG
  19. SPIRIVA [Concomitant]
     Dosage: 18 MCG
  20. TRICOR [Concomitant]
     Dosage: 145 MG

REACTIONS (3)
  - Gastrointestinal haemorrhage [Recovered/Resolved]
  - Haemorrhagic anaemia [Unknown]
  - Epistaxis [Unknown]
